FAERS Safety Report 7996832-3 (Version None)
Quarter: 2011Q4

REPORT INFORMATION
  Report Type: 
  Country: None (occurrence: None)
  Receive Date: 20111221
  Receipt Date: 20111213
  Transmission Date: 20120403
  Serious: Yes (Hospitalization, Other)
  Sender: FDA-Public Use
  Company Number: US-JNJFOC-20111001923

PATIENT
  Age: 51 Year
  Sex: Female
  Weight: 81.42 kg

DRUGS (5)
  1. CYCLOPHOSPHAMIDE [Suspect]
     Indication: BREAST CANCER
     Route: 058
     Dates: start: 20101019
  2. PEGFILGRASTIM [Suspect]
     Indication: BREAST CANCER
     Route: 058
     Dates: start: 20101019
  3. DOXORUBICIN HCL [Suspect]
     Indication: BREAST CANCER
     Route: 042
     Dates: start: 20101019
  4. BEVACIZUMAB [Suspect]
     Indication: BREAST CANCER
     Route: 042
     Dates: start: 20101019
  5. PACLITAXEL [Suspect]
     Indication: BREAST CANCER
     Route: 042
     Dates: start: 20101019

REACTIONS (4)
  - INTRA-ABDOMINAL HAEMORRHAGE [None]
  - ABDOMINAL PAIN [None]
  - ANAEMIA [None]
  - INFECTION [None]
